FAERS Safety Report 9284890 (Version 2)
Quarter: 2013Q2

REPORT INFORMATION
  Report Type: Spontaneous
  Country: BR (occurrence: BR)
  Receive Date: 20130513
  Receipt Date: 20130523
  Transmission Date: 20140414
  Serious: Yes (Death, Hospitalization)
  Sender: FDA-Public Use
  Company Number: BR-ROCHE-1223094

PATIENT
  Age: 39 Year
  Sex: Female
  Weight: 74 kg

DRUGS (9)
  1. MABTHERA [Suspect]
     Indication: POLYARTHRITIS
     Dosage: LAST INFUSION :24/JAN/2013
     Route: 042
     Dates: start: 20130111, end: 20130124
  2. NAPROXEN [Concomitant]
     Route: 048
  3. FOLIC ACID [Concomitant]
     Route: 048
  4. CALCIUM CARBONATE [Concomitant]
     Route: 048
  5. CYCLOBENZAPRINE [Concomitant]
     Route: 048
  6. METHOTREXATE [Concomitant]
     Route: 048
  7. OMEPRAZOLE [Concomitant]
     Route: 048
  8. PARACETAMOL [Concomitant]
     Route: 048
  9. PREDNISONE [Concomitant]
     Route: 048

REACTIONS (12)
  - Cardiac arrest [Fatal]
  - Cardiac failure [Fatal]
  - Pyrexia [Recovered/Resolved]
  - Psychomotor hyperactivity [Recovered/Resolved]
  - Pleural effusion [Recovered/Resolved]
  - Mediastinal haematoma [Recovered/Resolved]
  - Pulmonary hypertension [Recovered/Resolved]
  - Cough [Unknown]
  - Chest pain [Unknown]
  - Orthopnoea [Unknown]
  - Palpitations [Recovered/Resolved]
  - Dyspnoea [Unknown]
